FAERS Safety Report 13896909 (Version 1)
Quarter: 2017Q3

REPORT INFORMATION
  Report Type: Spontaneous
  Country: FR (occurrence: FR)
  Receive Date: 20170823
  Receipt Date: 20170823
  Transmission Date: 20171127
  Serious: Yes (Hospitalization, Other)
  Sender: FDA-Public Use
  Company Number: FR-PFIZER INC-2017357833

PATIENT
  Age: 67 Year
  Sex: Female

DRUGS (10)
  1. INSULIN [Concomitant]
     Active Substance: INSULIN NOS
  2. RAMIPRIL. [Concomitant]
     Active Substance: RAMIPRIL
  3. SPASFON [Concomitant]
     Active Substance: PHLOROGLUCINOL\1,3,5-TRIMETHOXYBENZENE
  4. ACUPAN [Concomitant]
     Active Substance: NEFOPAM HYDROCHLORIDE
  5. MIANSERIN [Concomitant]
     Active Substance: MIANSERIN
  6. PARACETAMOL [Concomitant]
     Active Substance: ACETAMINOPHEN
  7. TEMERIT DUO [Concomitant]
     Active Substance: HYDROCHLOROTHIAZIDE\NEBIVOLOL HYDROCHLORIDE
  8. LORMETAZEPAM [Concomitant]
     Active Substance: LORMETAZEPAM
  9. INLYTA [Suspect]
     Active Substance: AXITINIB
     Indication: RENAL CANCER METASTATIC
     Dosage: ONE TABLET, TWICE DAILY
     Route: 048
     Dates: start: 20160921, end: 20161025
  10. METOCLOPRAMIDE. [Concomitant]
     Active Substance: METOCLOPRAMIDE

REACTIONS (9)
  - Intestinal perforation [Recovered/Resolved]
  - Acute kidney injury [Unknown]
  - Pneumatosis intestinalis [Recovered/Resolved]
  - Weight decreased [Unknown]
  - Diarrhoea [Recovered/Resolved]
  - Pneumoperitoneum [Recovered/Resolved]
  - Decreased appetite [Unknown]
  - Dehydration [Unknown]
  - General physical health deterioration [Unknown]

NARRATIVE: CASE EVENT DATE: 2016
